FAERS Safety Report 6419307-1 (Version None)
Quarter: 2009Q4

REPORT INFORMATION
  Report Type: 
  Country: None (occurrence: None)
  Receive Date: 20091029
  Receipt Date: 20091016
  Transmission Date: 20100525
  Serious: Yes (Hospitalization)
  Sender: FDA-Public Use
  Company Number: US-ELI_LILLY_AND_COMPANY-AR200910001034

PATIENT
  Age: 68 Year
  Sex: Female
  Weight: 93 kg

DRUGS (4)
  1. BYETTA [Suspect]
     Indication: TYPE 1 DIABETES MELLITUS
     Dosage: 10 UG, UNKNOWN
     Route: 058
     Dates: start: 20090301
  2. ENALAPRIL [Concomitant]
     Indication: HYPERTENSION
     Dosage: UNK, UNKNOWN
     Route: 065
  3. ACETAMINOPHEN [Concomitant]
     Indication: HEADACHE
     Dosage: UNK, UNKNOWN
     Route: 065
  4. DIOCAM [Concomitant]
     Indication: DEPRESSION
     Dosage: UNK, 2/D
     Route: 065

REACTIONS (2)
  - HYPERGLYCAEMIA [None]
  - OFF LABEL USE [None]
